FAERS Safety Report 7522565-3 (Version None)
Quarter: 2011Q2

REPORT INFORMATION
  Report Type: 
  Country: None (occurrence: None)
  Receive Date: 20110603
  Receipt Date: 20110531
  Transmission Date: 20111010
  Serious: Yes (Hospitalization)
  Sender: FDA-Public Use
  Company Number: RO-ROCHE-780111

PATIENT
  Sex: Male
  Weight: 80 kg

DRUGS (2)
  1. PEGASYS [Suspect]
     Route: 058
     Dates: start: 20110401, end: 20110501
  2. COPEGUS [Suspect]
     Route: 048
     Dates: start: 20110401, end: 20110501

REACTIONS (1)
  - ACUTE LEUKAEMIA [None]
